FAERS Safety Report 9383084 (Version 1)
Quarter: 2013Q3

REPORT INFORMATION
  Report Type: Report from Study
  Country: FR (occurrence: FR)
  Receive Date: 20130704
  Receipt Date: 20130704
  Transmission Date: 20140515
  Serious: Yes (Life-Threatening, Hospitalization)
  Sender: FDA-Public Use
  Company Number: FR-ROCHE-1243976

PATIENT
  Age: 49 Year
  Sex: Female
  Weight: 47.5 kg

DRUGS (21)
  1. TOCILIZUMAB [Suspect]
     Indication: RHEUMATOID ARTHRITIS
     Route: 041
     Dates: start: 20101014
  2. TOCILIZUMAB [Suspect]
     Route: 042
     Dates: start: 20101110
  3. TOCILIZUMAB [Suspect]
     Route: 042
     Dates: start: 20101209
  4. TOCILIZUMAB [Suspect]
     Route: 042
     Dates: start: 20110110
  5. TOCILIZUMAB [Suspect]
     Route: 042
     Dates: start: 20110310
  6. TOCILIZUMAB [Suspect]
     Route: 042
     Dates: start: 20110421
  7. TOCILIZUMAB [Suspect]
     Route: 042
     Dates: start: 20110519
  8. TOCILIZUMAB [Suspect]
     Route: 042
     Dates: start: 20110616
  9. TOCILIZUMAB [Suspect]
     Route: 042
     Dates: start: 20110719
  10. TOCILIZUMAB [Suspect]
     Route: 042
     Dates: start: 20110822
  11. TOCILIZUMAB [Suspect]
     Route: 042
     Dates: start: 20110920
  12. TOCILIZUMAB [Suspect]
     Route: 042
     Dates: start: 20111018
  13. TOCILIZUMAB [Suspect]
     Dosage: UNSPECIFIED DOSE
     Route: 042
     Dates: start: 20111115
  14. TOCILIZUMAB [Suspect]
     Dosage: UNSPECIFIED DOSE
     Route: 042
     Dates: start: 20111213
  15. METHOTREXATE [Concomitant]
     Route: 065
     Dates: start: 201002
  16. METHOTREXATE [Concomitant]
     Route: 065
     Dates: start: 20101209
  17. METHOTREXATE [Concomitant]
     Route: 065
     Dates: start: 20110421
  18. METHOTREXATE [Concomitant]
     Route: 065
     Dates: start: 20111018
  19. ACTRAPID [Concomitant]
     Dosage: 6 IU IN THE MORNING, 6 IU AT NOON, 8 IU IN THE EVENING
     Route: 065
  20. LANTUS [Concomitant]
     Route: 065
  21. RIFINAH [Concomitant]
     Route: 065

REACTIONS (2)
  - Bronchopneumonia [Recovered/Resolved with Sequelae]
  - Interstitial lung disease [Recovered/Resolved with Sequelae]
